FAERS Safety Report 5023819-5 (Version None)
Quarter: 2006Q2

REPORT INFORMATION
  Report Type: 
  Country: None (occurrence: None)
  Receive Date: 20060606
  Receipt Date: 20060525
  Transmission Date: 20061013
  Serious: Yes (Death)
  Sender: FDA-Public Use
  Company Number: USA-2006-0024298

PATIENT
  Age: 22 Year
  Sex: Male

DRUGS (2)
  1. OXYCODONE HCL [Suspect]
     Indication: DRUG USE FOR UNKNOWN INDICATION
  2. METHADONE HCL [Suspect]

REACTIONS (4)
  - ACCIDENTAL DEATH [None]
  - ASPIRATION [None]
  - MULTIPLE DRUG OVERDOSE ACCIDENTAL [None]
  - OBSTRUCTIVE AIRWAYS DISORDER [None]
